FAERS Safety Report 8911352 (Version 1)
Quarter: 2012Q4

REPORT INFORMATION
  Report Type: 
  Country: US (occurrence: US)
  Receive Date: 20121116
  Receipt Date: 20121116
  Transmission Date: 20130627
  Serious: No
  Sender: FDA-Public Use
  Company Number: US-GLAXOSMITHKLINE-A0998079A

PATIENT
  Age: 74 Year
  Sex: Female

DRUGS (2)
  1. VOTRIENT [Suspect]
     Indication: RENAL CANCER
     Dosage: 600MG Per day
     Route: 048
  2. CRESTOR [Concomitant]

REACTIONS (6)
  - Ill-defined disorder [Unknown]
  - Dysphagia [Unknown]
  - Muscle spasms [Unknown]
  - Fatigue [Unknown]
  - Blood pressure increased [Recovering/Resolving]
  - Gait disturbance [Unknown]
